FAERS Safety Report 6772398-0 (Version None)
Quarter: 2010Q2

REPORT INFORMATION
  Report Type: 
  Country: None (occurrence: None)
  Receive Date: 20100616
  Receipt Date: 20090604
  Transmission Date: 20101027
  Serious: No
  Sender: FDA-Public Use
  Company Number: US-ASTRAZENECA-2009UW14104

PATIENT
  Age: 79 Year
  Sex: Male

DRUGS (4)
  1. PULMICORT [Suspect]
     Indication: BRONCHITIS
     Route: 055
     Dates: start: 20090420
  2. PULMICORT [Suspect]
     Indication: MULTIPLE ALLERGIES
     Route: 055
     Dates: start: 20090420
  3. ALLEGRA D 24 HOUR TABLETS [Suspect]
     Indication: BRONCHITIS
     Dosage: 1 TABLET
     Route: 048
     Dates: start: 20090420, end: 20090427
  4. ALLEGRA D 24 HOUR TABLETS [Suspect]
     Indication: MULTIPLE ALLERGIES
     Dosage: 1 TABLET
     Route: 048
     Dates: start: 20090420, end: 20090427

REACTIONS (4)
  - CONFUSIONAL STATE [None]
  - DIZZINESS [None]
  - INSOMNIA [None]
  - RESTLESSNESS [None]
